FAERS Safety Report 4959927-4 (Version None)
Quarter: 2006Q1

REPORT INFORMATION
  Report Type: 
  Country: None (occurrence: None)
  Receive Date: 20060331
  Receipt Date: 20050415
  Transmission Date: 20060701
  Serious: Yes (Hospitalization)
  Sender: FDA-Public Use
  Company Number: US-MERCK-0504USA03329

PATIENT
  Age: 45 Year
  Sex: Female
  Weight: 89 kg

DRUGS (2)
  1. VIOXX [Suspect]
     Indication: BACK PAIN
     Route: 048
     Dates: start: 20001228, end: 20010101
  2. ADVIL [Concomitant]
     Route: 065

REACTIONS (8)
  - CEREBROVASCULAR ACCIDENT [None]
  - DYSPNOEA EXERTIONAL [None]
  - ENCEPHALOPATHY [None]
  - FATIGUE [None]
  - FLUSHING [None]
  - HEADACHE [None]
  - IRON DEFICIENCY ANAEMIA [None]
  - VIRAL INFECTION [None]
